FAERS Safety Report 8977791 (Version 1)
Quarter: 2012Q4

REPORT INFORMATION
  Report Type: Report from Study
  Country: CA (occurrence: CA)
  Receive Date: 20121220
  Receipt Date: 20121220
  Transmission Date: 20130627
  Serious: Yes (Other)
  Sender: FDA-Public Use
  Company Number: CA-ROCHE-1171879

PATIENT
  Sex: Female
  Weight: 69.8 kg

DRUGS (1)
  1. OMALIZUMAB [Suspect]
     Indication: ASTHMA
     Dosage: UNK
     Route: 058
     Dates: start: 20060131

REACTIONS (6)
  - Lower respiratory tract infection [Unknown]
  - Feeling abnormal [Unknown]
  - Disturbance in attention [Unknown]
  - Lung disorder [Unknown]
  - Nasopharyngitis [Unknown]
  - Asthma [Recovered/Resolved]
